FAERS Safety Report 16329757 (Version 1)
Quarter: 2019Q2

REPORT INFORMATION
  Report Type: Other
  Country: FR (occurrence: FR)
  Receive Date: 20190520
  Receipt Date: 20190520
  Transmission Date: 20190711
  Serious: Yes (Life-Threatening)
  Sender: FDA-Public Use
  Company Number: FR-DENTSPLY-2019SCDP000308

PATIENT
  Age: 74 Year
  Sex: Female

DRUGS (5)
  1. XYLOCAINE WITH ADRENALINE (EPINEPHRINE) [Suspect]
     Active Substance: EPINEPHRINE BITARTRATE\LIDOCAINE HYDROCHLORIDE
     Indication: ANTIBIOTIC PROPHYLAXIS
     Dosage: 100 MG, TOTAL
     Route: 042
     Dates: start: 20190426, end: 20190426
  2. ESMERON [Suspect]
     Active Substance: ROCURONIUM BROMIDE
     Indication: ANTIBIOTIC PROPHYLAXIS
     Dosage: 50 MG, TOTAL
     Route: 042
     Dates: start: 20190426, end: 20190426
  3. CEFAZOLINE                         /00288501/ [Suspect]
     Active Substance: CEFAZOLIN
     Indication: ANTIBIOTIC PROPHYLAXIS
     Dosage: 2 G, TOTAL
     Route: 042
     Dates: start: 20190426, end: 20190426
  4. DEXDOR [Suspect]
     Active Substance: DEXMEDETOMIDINE HYDROCHLORIDE
     Indication: ANTIBIOTIC PROPHYLAXIS
     Dosage: 50 MG, TOTAL
     Route: 042
     Dates: start: 20190426, end: 20190426
  5. DIPRIVAN [Suspect]
     Active Substance: PROPOFOL
     Indication: ANTIBIOTIC PROPHYLAXIS
     Dosage: 200 MG, TOTAL
     Route: 042
     Dates: start: 20190426, end: 20190426

REACTIONS (1)
  - Anaphylactic shock [Recovered/Resolved]

NARRATIVE: CASE EVENT DATE: 20190426
